FAERS Safety Report 6239021-5 (Version None)
Quarter: 2009Q2

REPORT INFORMATION
  Report Type: 
  Country: None (occurrence: None)
  Receive Date: 20090622
  Receipt Date: 20090616
  Transmission Date: 20091009
  Serious: Yes (Death, Hospitalization)
  Sender: FDA-Public Use
  Company Number: B0579694A

PATIENT
  Sex: Female
  Weight: 69 kg

DRUGS (4)
  1. LAPATINIB [Suspect]
     Dosage: 1500MG PER DAY
     Route: 048
     Dates: start: 20090529, end: 20090612
  2. TEMOZOLOMIDE [Suspect]
     Dosage: 100MGM2 PER DAY
     Route: 048
     Dates: start: 20090529, end: 20090602
  3. KEPPRA [Concomitant]
     Indication: EPILEPSY
     Dosage: 1000MG TWICE PER DAY
     Dates: start: 20080201
  4. PREDNISOLONE [Concomitant]
     Dosage: 30MG TWICE PER DAY
     Dates: start: 20090501

REACTIONS (1)
  - RESPIRATORY DISTRESS [None]
